FAERS Safety Report 7151194-9 (Version None)
Quarter: 2010Q4

REPORT INFORMATION
  Report Type: 
  Country: None (occurrence: None)
  Receive Date: 20101124
  Receipt Date: 20101112
  Transmission Date: 20110411
  Serious: No
  Sender: FDA-Public Use
  Company Number: 021823

PATIENT
  Age: 40 Year
  Sex: Male

DRUGS (3)
  1. KEPPRA [Suspect]
     Indication: CONVULSION
     Dosage: (6000 MG, KEPPRA XR 500 MG, 4 TABLETS TID)
     Dates: start: 20100101
  2. LAMICTAL [Concomitant]
  3. PHENOBARBITAL [Concomitant]

REACTIONS (2)
  - CONVULSION [None]
  - DRUG DOSE OMISSION [None]
